FAERS Safety Report 17344645 (Version 1)
Quarter: 2020Q1

REPORT INFORMATION
  Report Type: Spontaneous
  Country: US (occurrence: US)
  Receive Date: 20200129
  Receipt Date: 20200129
  Transmission Date: 20200409
  Serious: No
  Sender: FDA-Public Use
  Company Number: US-ALLERGAN-1942741US

PATIENT
  Sex: Female

DRUGS (2)
  1. BOTOX COSMETIC [Suspect]
     Active Substance: ONABOTULINUMTOXINA
     Indication: SKIN WRINKLING
     Dosage: 5 UNITS, SINGLE
     Dates: start: 20191014, end: 20191014
  2. BOTOX COSMETIC [Suspect]
     Active Substance: ONABOTULINUMTOXINA
     Dosage: 7 UNITS, SINGLE
     Dates: start: 20191014, end: 20191014

REACTIONS (4)
  - Pain [Recovered/Resolved]
  - Injection site pain [Recovered/Resolved]
  - Off label use [Unknown]
  - Product preparation error [Unknown]

NARRATIVE: CASE EVENT DATE: 201910
